FAERS Safety Report 9521660 (Version 1)
Quarter: 2013Q3

REPORT INFORMATION
  Report Type: Spontaneous
  Country: US (occurrence: US)
  Receive Date: 20130913
  Receipt Date: 20130913
  Transmission Date: 20140515
  Serious: Yes (Hospitalization, Other)
  Sender: FDA-Public Use
  Company Number: PHEH2013US019007

PATIENT
  Sex: Female

DRUGS (6)
  1. VIVELLE DOT [Suspect]
     Dosage: 0.05 MG, UNK
     Route: 062
  2. SIMVASTATIN [Concomitant]
     Dosage: 40 MG, UNK
  3. PROGESTERONE [Concomitant]
     Dosage: 1 DF, A DAY
  4. CALCIUM CITRATE WITH VITAMIN D [Concomitant]
     Dosage: 2 DF,  A DAY
  5. TRAMADOL [Concomitant]
     Dosage: 2 DF, A DAY
  6. ZOFRAN [Concomitant]
     Dosage: 2 DF, A DAY

REACTIONS (2)
  - Pancreatitis [Unknown]
  - Pancreatic mass [Unknown]
